FAERS Safety Report 10105806 (Version 1)
Quarter: 2014Q2

REPORT INFORMATION
  Report Type: Spontaneous
  Country: GB (occurrence: GB)
  Receive Date: 20140424
  Receipt Date: 20140424
  Transmission Date: 20141212
  Serious: Yes (Other)
  Sender: FDA-Public Use
  Company Number: PHHY2014GB046756

PATIENT
  Age: 73 Year
  Sex: Female

DRUGS (3)
  1. CEFTRIAXONE [Suspect]
     Indication: GOUTY TOPHUS
     Dates: start: 20140320, end: 20140320
  2. CALCICHEW D3 [Concomitant]
     Dosage: 1 DF, BID
  3. ALENDRONIC ACID [Concomitant]
     Dosage: 70 MG, QW

REACTIONS (1)
  - Dystonia [Recovered/Resolved]
